FAERS Safety Report 15532555 (Version 3)
Quarter: 2019Q1

REPORT INFORMATION
  Report Type: Spontaneous
  Country: US (occurrence: US)
  Receive Date: 20181019
  Receipt Date: 20190110
  Transmission Date: 20190417
  Serious: No
  Sender: FDA-Public Use
  Company Number: US-SA-2018SA290253

PATIENT
  Age: 46 Year
  Sex: Female

DRUGS (1)
  1. DUPIXENT [Suspect]
     Active Substance: DUPILUMAB
     Indication: DERMATITIS ATOPIC
     Dosage: 300 MG, QOW
     Route: 058
     Dates: start: 20180921

REACTIONS (7)
  - Dermatitis [Not Recovered/Not Resolved]
  - Injection site reaction [Unknown]
  - Rhinorrhoea [Unknown]
  - Menorrhagia [Unknown]
  - Dry skin [Not Recovered/Not Resolved]
  - Injection site vesicles [Unknown]
  - Headache [Unknown]

NARRATIVE: CASE EVENT DATE: 20181017
